FAERS Safety Report 7935462-6 (Version None)
Quarter: 2011Q4

REPORT INFORMATION
  Report Type: 
  Country: None (occurrence: None)
  Receive Date: 20111123
  Receipt Date: 20111121
  Transmission Date: 20120403
  Serious: Yes (Hospitalization)
  Sender: FDA-Public Use
  Company Number: IE-AMGEN-IRLSP2011059533

PATIENT
  Age: 70 Year
  Sex: Female

DRUGS (8)
  1. ARANESP [Suspect]
     Indication: ANAEMIA OF MALIGNANT DISEASE
     Dosage: 500 MUG, Q3WK
     Route: 058
     Dates: start: 20110822
  2. EZETIMIBE [Concomitant]
     Dosage: 40 MG, UNK
  3. LERCANIDIPINE [Concomitant]
     Dosage: 10 MG, UNK
  4. DEXAMETHASONE [Concomitant]
  5. EZETIMIBE [Concomitant]
     Dosage: 40 MG, UNK
  6. MICARDIS [Concomitant]
     Dosage: 40 MG, UNK
  7. NSA [Concomitant]
     Dosage: 75 MG, UNK
  8. PANTOPRAZOLE [Concomitant]
     Dosage: 40 MG, UNK

REACTIONS (1)
  - CELLULITIS [None]
